FAERS Safety Report 12662184 (Version 4)
Quarter: 2019Q1

REPORT INFORMATION
  Report Type: Report from Study
  Country: US (occurrence: US)
  Receive Date: 20160817
  Receipt Date: 20190329
  Transmission Date: 20190417
  Serious: Yes (Other)
  Sender: FDA-Public Use
  Company Number: US-AMGEN-USASL2016103836

PATIENT
  Age: 54 Year
  Sex: Female

DRUGS (3)
  1. DICLOFENAC [Concomitant]
     Active Substance: DICLOFENAC
     Dosage: UNK
  2. ENBREL [Suspect]
     Active Substance: ETANERCEPT
     Indication: PRODUCT USED FOR UNKNOWN INDICATION
     Dosage: UNK UNK, QWK
     Route: 065
     Dates: start: 20101130
  3. ENBREL [Suspect]
     Active Substance: ETANERCEPT
     Dosage: UNK UNK, QWK
     Route: 065

REACTIONS (13)
  - Latent tuberculosis [Unknown]
  - Injection site pain [Unknown]
  - Stress [Unknown]
  - Affect lability [Unknown]
  - Rheumatoid arthritis [Unknown]
  - Pituitary tumour [Unknown]
  - Adrenocortical insufficiency acute [Unknown]
  - Drug effect variable [Unknown]
  - Gait disturbance [Unknown]
  - Hypertension [Unknown]
  - Gastrooesophageal reflux disease [Unknown]
  - Insomnia [Unknown]
  - Wrong technique in product usage process [Unknown]
